FAERS Safety Report 4611980-3 (Version None)
Quarter: 2005Q2

REPORT INFORMATION
  Report Type: 
  Country: None (occurrence: None)
  Receive Date: 20050308
  Receipt Date: 20050106
  Transmission Date: 20051028
  Serious: Yes (Other)
  Sender: FDA-Public Use
  Company Number: 2005UW00413

PATIENT
  Age: 46 Year
  Sex: Male

DRUGS (1)
  1. CRESTOR [Suspect]
     Dosage: 10 MG QD PO
     Route: 048

REACTIONS (4)
  - DIZZINESS [None]
  - DYSARTHRIA [None]
  - FATIGUE [None]
  - HYPERHIDROSIS [None]
